FAERS Safety Report 15617795 (Version 1)
Quarter: 2018Q4

REPORT INFORMATION
  Report Type: Spontaneous
  Country: CA (occurrence: CA)
  Receive Date: 20181114
  Receipt Date: 20181114
  Transmission Date: 20190205
  Serious: Yes (Other)
  Sender: FDA-Public Use
  Company Number: PHHY2017CA204853

PATIENT
  Sex: Female

DRUGS (14)
  1. LEVOTHYROXINE. [Concomitant]
     Active Substance: LEVOTHYROXINE
     Dosage: 50 MG, QD
     Route: 048
     Dates: start: 20150825
  2. LEVOTHYROXINE. [Concomitant]
     Active Substance: LEVOTHYROXINE
     Dosage: 75 UG, QD
     Route: 048
     Dates: start: 20151201
  3. BACLOFEN. [Concomitant]
     Active Substance: BACLOFEN
     Indication: HYPOTHALAMO-PITUITARY DISORDER
     Dosage: 10 MG, BID
     Route: 048
     Dates: start: 20101210
  4. KEPPRA [Concomitant]
     Active Substance: LEVETIRACETAM
     Indication: HYPOTHALAMO-PITUITARY DISORDER
     Dosage: 875 MG, QD (375MG Q.A.M, 500MG Q.P.M)
     Route: 048
     Dates: start: 20130207
  5. CLOBAZAM. [Concomitant]
     Active Substance: CLOBAZAM
     Indication: HYPOTHALAMO-PITUITARY DISORDER
     Dosage: 15 MG, QD (5MG Q.A.M, 10MG Q.P.M)
     Route: 048
     Dates: start: 20140917
  6. LEVOTHYROXINE. [Concomitant]
     Active Substance: LEVOTHYROXINE
     Indication: SECONDARY HYPOTHYROIDISM
     Dosage: 37.5 UG, QD
     Route: 048
     Dates: start: 20140401
  7. MELATONIN [Concomitant]
     Active Substance: MELATONIN
     Indication: PROPHYLAXIS
     Dosage: 4.5 MG, QD
     Route: 048
     Dates: start: 20150615
  8. OXCARBAZEPINE. [Concomitant]
     Active Substance: OXCARBAZEPINE
     Indication: SEIZURE
     Dosage: 150 MG, BID
     Route: 048
     Dates: start: 2015
  9. METFORMIN [Suspect]
     Active Substance: METFORMIN HYDROCHLORIDE
     Indication: HYPOTHALAMO-PITUITARY DISORDER
     Dosage: UNK
     Route: 048
     Dates: start: 20160725
  10. OMNITROPE [Suspect]
     Active Substance: SOMATROPIN
     Indication: GROWTH HORMONE DEFICIENCY
     Dosage: 0.032 MG/KG, QD
     Route: 058
     Dates: start: 20130730
  11. KEPPRA [Concomitant]
     Active Substance: LEVETIRACETAM
     Dosage: 1750 MG, QD (750MG Q.A.M, 1000MG Q.P.M)
     Route: 048
     Dates: start: 20140831
  12. HIDROCORTISON [Concomitant]
     Active Substance: HYDROCORTISONE
     Indication: ADRENAL INSUFFICIENCY
     Dosage: 7.5 MG, QD (5MG Q.A.M, 2.5MG Q.P.M)
     Route: 048
     Dates: start: 20140401, end: 20170815
  13. HIDROCORTISON [Concomitant]
     Active Substance: HYDROCORTISONE
     Indication: SECONDARY HYPOTHYROIDISM
     Dosage: 5 MG, BID
     Route: 048
     Dates: start: 20170815
  14. ESTRACE [Concomitant]
     Active Substance: ESTRADIOL
     Indication: PROPHYLAXIS
     Dosage: 0.5 MG, QD
     Route: 048
     Dates: start: 20170228

REACTIONS (9)
  - Pneumonia [Recovered/Resolved]
  - Headache [Recovered/Resolved]
  - Developmental hip dysplasia [Not Recovered/Not Resolved]
  - Pyrexia [Recovered/Resolved]
  - Arthralgia [Not Recovered/Not Resolved]
  - Vomiting [Recovered/Resolved]
  - Viral infection [Recovered/Resolved]
  - Pain in extremity [Recovered/Resolved]
  - Scoliosis [Not Recovered/Not Resolved]

NARRATIVE: CASE EVENT DATE: 201602
